FAERS Safety Report 5202510-6 (Version None)
Quarter: 2006Q4

REPORT INFORMATION
  Report Type: 
  Country: None (occurrence: None)
  Receive Date: 20061017
  Receipt Date: 20000418
  Transmission Date: 20070319
  Serious: Yes (Hospitalization)
  Sender: FDA-Public Use
  Company Number: PHEH2005US07022

PATIENT
  Age: 78 Year
  Sex: Female

DRUGS (1)
  1. MIACALCIN [Suspect]
     Indication: OSTEOARTHRITIS
     Dosage: 200 IU, QD, INTRANASAL
     Route: 045
     Dates: start: 20030101, end: 20050528

REACTIONS (3)
  - CAUTERY TO NOSE [None]
  - EPISTAXIS [None]
  - FEELING ABNORMAL [None]
